APPROVED DRUG PRODUCT: MD-76R
Active Ingredient: DIATRIZOATE MEGLUMINE; DIATRIZOATE SODIUM
Strength: 66%;10%
Dosage Form/Route: INJECTABLE;INJECTION
Application: N019292 | Product #001
Applicant: LIEBEL-FLARSHEIM CO LLC
Approved: Sep 29, 1989 | RLD: Yes | RS: No | Type: DISCN